FAERS Safety Report 23462097 (Version 1)
Quarter: 2024Q1

REPORT INFORMATION
  Report Type: Spontaneous
  Country: US (occurrence: US)
  Receive Date: 20240131
  Receipt Date: 20240131
  Transmission Date: 20240409
  Serious: No
  Sender: FDA-Public Use
  Company Number: US-SA-SAC20240125000599

PATIENT
  Sex: Male

DRUGS (1)
  1. CAPRELSA [Suspect]
     Active Substance: VANDETANIB
     Dosage: UNK
     Route: 065

REACTIONS (7)
  - Tachycardia [Unknown]
  - Electrocardiogram abnormal [Unknown]
  - Headache [Unknown]
  - Muscle spasms [Unknown]
  - Abdominal discomfort [Unknown]
  - Visual impairment [Unknown]
  - Condition aggravated [Unknown]
